FAERS Safety Report 9276639 (Version 1)
Quarter: 2012Q4

REPORT INFORMATION
  Report Type: Spontaneous
  Country: US (occurrence: None)
  Receive Date: 20121109
  Receipt Date: 20121109
  Transmission Date: 20130627
  Serious: Yes (Death)
  Sender: FDA-Public Use
  Company Number: 2012S1000343

PATIENT
  Age: 42 Year
  Sex: Female

DRUGS (7)
  1. CUBICIN [Suspect]
     Indication: ALCALIGENES INFECTION
     Route: 042
  2. CUBICIN [Suspect]
     Indication: STAPHYLOCOCCAL INFECTION
     Route: 042
  3. RIFAMPIN [Suspect]
     Indication: ALCALIGENES INFECTION
  4. RIFAMPIN [Suspect]
     Indication: STAPHYLOCOCCAL INFECTION
  5. GENTAMICIN [Suspect]
  6. VANCOMYCIN [Concomitant]
  7. CILASTATIN W/IMIPENEM [Concomitant]

REACTIONS (1)
  - Death [None]
